FAERS Safety Report 5554898-4 (Version None)
Quarter: 2007Q4

REPORT INFORMATION
  Report Type: 
  Country: None (occurrence: None)
  Receive Date: 20071211
  Receipt Date: 20071130
  Transmission Date: 20080405
  Serious: Yes (Hospitalization)
  Sender: FDA-Public Use
  Company Number: PIR# 0711060A

PATIENT
  Age: 40 Year
  Sex: Male
  Weight: 64 kg

DRUGS (1)
  1. CEFTRIAXONE [Suspect]
     Dosage: 2G EVERY 12HRS 1-DAY, IV FOLLOWED BY 1 G, EVERY 12 HOURS, INTRAVENOUSLY
     Route: 042

REACTIONS (2)
  - ACUTE GENERALISED EXANTHEMATOUS PUSTULOSIS [None]
  - NEPHRITIS INTERSTITIAL [None]
